FAERS Safety Report 10416329 (Version 1)
Quarter: 2014Q3

REPORT INFORMATION
  Report Type: Spontaneous
  Country: US (occurrence: None)
  Receive Date: 20140826
  Receipt Date: 20140826
  Transmission Date: 20150326
  Serious: Yes (Hospitalization)
  Sender: FDA-Public Use
  Company Number: 2014RT000096

PATIENT
  Age: 32 Month
  Sex: Male
  Weight: 12 kg

DRUGS (1)
  1. PROCYSBI DELAYED-RELEASE [Suspect]
     Active Substance: CYSTEAMINE BITARTRATE
     Indication: CYSTINOSIS
     Dates: start: 201401

REACTIONS (2)
  - Tonsillectomy [None]
  - Ear tube insertion [None]

NARRATIVE: CASE EVENT DATE: 20140808
